FAERS Safety Report 14680978 (Version 1)
Quarter: 2018Q1

REPORT INFORMATION
  Report Type: Spontaneous
  Country: US (occurrence: US)
  Receive Date: 20180326
  Receipt Date: 20180326
  Transmission Date: 20180509
  Serious: Yes (Death)
  Sender: FDA-Public Use
  Company Number: US-ROCHE-2091404

PATIENT
  Age: 54 Year
  Sex: Female

DRUGS (1)
  1. ALECENSA [Suspect]
     Active Substance: ALECTINIB HYDROCHLORIDE
     Indication: LUNG NEOPLASM MALIGNANT
     Dosage: 4 CAPULES EVERY 12 HOURLY
     Route: 048
     Dates: start: 20180117, end: 20180224

REACTIONS (1)
  - Death [Fatal]

NARRATIVE: CASE EVENT DATE: 20180224
